FAERS Safety Report 7599820-4 (Version None)
Quarter: 2011Q2

REPORT INFORMATION
  Report Type: 
  Country: None (occurrence: None)
  Receive Date: 20110629
  Receipt Date: 20110614
  Transmission Date: 20111010
  Serious: Yes (Other)
  Sender: FDA-Public Use
  Company Number: 2011MA006612

PATIENT
  Age: 32 Year
  Sex: Male

DRUGS (2)
  1. CITALOPRAM HYDROBROMIDE [Suspect]
     Indication: DEPRESSION
     Dosage: 10 MG, QD, PO
     Route: 048
     Dates: start: 20110201, end: 20110501
  2. VITAMIN TAB [Suspect]

REACTIONS (1)
  - STRABISMUS [None]
